FAERS Safety Report 11128459 (Version 1)
Quarter: 2015Q2

REPORT INFORMATION
  Report Type: Spontaneous
  Country: US (occurrence: US)
  Receive Date: 20150521
  Receipt Date: 20150521
  Transmission Date: 20150821
  Serious: Yes (Disabling)
  Sender: FDA-Public Use
  Company Number: US-SA-2015SA066310

PATIENT
  Age: 77 Year
  Sex: Female

DRUGS (3)
  1. LANTUS SOLOSTAR [Suspect]
     Active Substance: INSULIN GLARGINE
     Indication: DIABETES MELLITUS
     Dosage: DOSE: 29-30 UNITS?START DATE: 4-5 YEARS
     Route: 065
  2. SOLOSTAR [Concomitant]
     Active Substance: DEVICE
     Indication: DIABETES MELLITUS
  3. NOVOLIN [Concomitant]
     Active Substance: INSULIN HUMAN

REACTIONS (5)
  - Nail disorder [Unknown]
  - Bone disorder [Unknown]
  - Visual acuity reduced [Unknown]
  - Localised infection [Unknown]
  - Condition aggravated [Unknown]
